FAERS Safety Report 9560292 (Version 1)
Quarter: 2013Q3

REPORT INFORMATION
  Report Type: Spontaneous
  Country: US (occurrence: None)
  Receive Date: 20130909
  Receipt Date: 20130909
  Transmission Date: 20140515
  Serious: Yes (Other)
  Sender: FDA-Public Use
  Company Number: 380619

PATIENT
  Age: 60 Year
  Sex: 0

DRUGS (9)
  1. VICTOZA (LIRAGLUTIDE) SOLUTION FOR INJECTION, 6MG/ML [Suspect]
     Indication: DIABETES MELLITUS
     Dosage: UNK, SUBCUTANEOUS
     Route: 058
  2. ACYCLOVIR /00587301/ (ACICLOVIR) [Concomitant]
  3. METOPROLOL SUCCINATE (METOPROLOL SUCCINATE) [Concomitant]
  4. DIGOXIN (DIGOXIN) [Concomitant]
  5. LASIX /00032601/ (FUROSEMIDE) UNK, UNKUNK [Concomitant]
  6. VITAMIN D /00107901/ (ERGOCALCIFEROL) [Concomitant]
  7. OXYCONTIN (OXYCODONE HYDROCHLORIDE) [Concomitant]
  8. FOLIC ACID (FOLIC ACID) [Concomitant]
  9. XANAX (ALPRAZOLAM) [Concomitant]

REACTIONS (1)
  - Pancreatitis [None]
